FAERS Safety Report 17311027 (Version 1)
Quarter: 2020Q1

REPORT INFORMATION
  Report Type: Spontaneous
  Country: US (occurrence: US)
  Receive Date: 20200123
  Receipt Date: 20200123
  Transmission Date: 20200409
  Serious: Yes (Other)
  Sender: FDA-Public Use
  Company Number: US-ROCHE-2358912

PATIENT
  Age: 26 Year
  Sex: Male

DRUGS (1)
  1. RITUXIMAB. [Suspect]
     Active Substance: RITUXIMAB
     Indication: IMMUNOSUPPRESSANT DRUG THERAPY
     Route: 065

REACTIONS (4)
  - Cytomegalovirus viraemia [Unknown]
  - Klebsiella bacteraemia [Unknown]
  - Human herpesvirus 6 infection [Unknown]
  - Viraemia [Unknown]
